FAERS Safety Report 5673829-X (Version None)
Quarter: 2008Q2

REPORT INFORMATION
  Report Type: 
  Country: None (occurrence: None)
  Receive Date: 20080226
  Receipt Date: 20070629
  Transmission Date: 20081010
  Serious: Yes (Other)
  Sender: FDA-Public Use
  Company Number: 504702

PATIENT
  Age: 22 Year
  Sex: Female
  Weight: 99.8 kg

DRUGS (4)
  1. ACCUTANE [Suspect]
     Indication: ACNE
     Dosage: 40 MG 2 PER DAY ORAL
     Route: 048
     Dates: end: 20070525
  2. CLARAVIS [Suspect]
     Indication: ACNE
     Dosage: 40 MG  2 PER DAY  ORAL
     Route: 048
     Dates: end: 20070525
  3. YASMIN [Concomitant]
  4. CELEXA [Concomitant]

REACTIONS (2)
  - ADVERSE EVENT [None]
  - BLOOD TRIGLYCERIDES INCREASED [None]
